FAERS Safety Report 4933141-0 (Version None)
Quarter: 2006Q1

REPORT INFORMATION
  Report Type: 
  Country: None (occurrence: None)
  Receive Date: 20060118
  Receipt Date: 20051109
  Transmission Date: 20060701
  Serious: Yes (Death)
  Sender: FDA-Public Use
  Company Number: US-JNJFOC-20051103559

PATIENT
  Age: 75 Year
  Sex: Female

DRUGS (1)
  1. DOXIL [Suspect]
     Indication: UTERINE LEIOMYOSARCOMA
     Dosage: INTRAVENOUS
     Route: 042
     Dates: start: 20040601, end: 20040908

REACTIONS (1)
  - UTERINE LEIOMYOSARCOMA [None]
